FAERS Safety Report 16980006 (Version 2)
Quarter: 2020Q3

REPORT INFORMATION
  Report Type: Report from Study
  Country: US (occurrence: US)
  Receive Date: 20191031
  Receipt Date: 20191216
  Transmission Date: 20201105
  Serious: Yes (Hospitalization)
  Sender: FDA-Public Use
  Company Number: US-PFIZER INC-2019463824

PATIENT
  Age: 43 Year
  Sex: Female
  Weight: 58.9 kg

DRUGS (2)
  1. TALAZOPARIB. [Suspect]
     Active Substance: TALAZOPARIB
     Indication: COLORECTAL CANCER
     Dosage: UNK, 1X/DAY
     Route: 048
     Dates: start: 20191010
  2. TALAZOPARIB. [Suspect]
     Active Substance: TALAZOPARIB
     Indication: BLOOD BILIRUBIN INCREASED

REACTIONS (1)
  - Hyponatraemia [Recovered/Resolved]

NARRATIVE: CASE EVENT DATE: 20191023
